FAERS Safety Report 8361934-9 (Version None)
Quarter: 2012Q2

REPORT INFORMATION
  Report Type: 
  Country: None (occurrence: None)
  Receive Date: 20120515
  Receipt Date: 20120511
  Transmission Date: 20120825
  Serious: Yes (Death, Hospitalization)
  Sender: FDA-Public Use
  Company Number: IT-BAYER-2012-024239

PATIENT
  Age: 78 Year
  Sex: Male

DRUGS (6)
  1. ROSUVASTATIN [Concomitant]
     Indication: HYPERCHOLESTEROLAEMIA
     Dosage: DAILY DOSE 5 MG
     Route: 048
  2. AMIODARONE HCL [Concomitant]
     Indication: ATRIAL FIBRILLATION
     Dosage: DAILY DOSE 200 MG
     Route: 048
  3. LASIX [Concomitant]
     Indication: HYPERTENSION
     Dosage: DAILY DOSE 25 MG
     Route: 048
  4. IRBESARTAN [Concomitant]
     Indication: HYPERTENSION
     Dosage: DAILY DOSE 150 MG
     Route: 048
  5. ASPIRIN [Suspect]
     Indication: CARDIOVASCULAR EVENT PROPHYLAXIS
     Dosage: 100 MG, QD
     Route: 048
     Dates: start: 19990101, end: 20120226
  6. HUMALOG [Concomitant]
     Indication: TYPE 2 DIABETES MELLITUS
     Dosage: DAILY DOSE 28 U/ML
     Route: 058

REACTIONS (2)
  - INTRACRANIAL PRESSURE INCREASED [None]
  - CEREBRAL HAEMORRHAGE [None]
